FAERS Safety Report 9302616 (Version 1)
Quarter: 2013Q2

REPORT INFORMATION
  Report Type: Spontaneous
  Country: CA (occurrence: None)
  Receive Date: 20130517
  Receipt Date: 20130517
  Transmission Date: 20140414
  Serious: Yes (Other)
  Sender: FDA-Public Use
  Company Number: 2013CA0178

PATIENT
  Age: 66 Year
  Sex: Female

DRUGS (3)
  1. KINERET [Suspect]
     Indication: RHEUMATOID ARTHRITIS
     Dosage: (100 MG, 1 IN 1 D)
     Route: 058
     Dates: start: 20020915
  2. METHOTREXATE (METHOTREXATE) (METHOTREXATE) [Concomitant]
  3. VOLTARIN (DICLOFENAC)(DICLOFENAC) [Concomitant]

REACTIONS (1)
  - Skin cancer [None]
